FAERS Safety Report 13614537 (Version 1)
Quarter: 2017Q2

REPORT INFORMATION
  Report Type: Report from Study
  Country: RU (occurrence: RU)
  Receive Date: 20170606
  Receipt Date: 20170606
  Transmission Date: 20170830
  Serious: Yes (Other)
  Sender: FDA-Public Use
  Company Number: RU-TEVA-774134ISR

PATIENT
  Age: 10 Year
  Sex: Male
  Weight: 70.9 kg

DRUGS (14)
  1. ETOPOSIDE. [Suspect]
     Active Substance: ETOPOSIDE
     Dosage: IN CYCLE 4
  2. DOXORUBICIN [Suspect]
     Active Substance: DOXORUBICIN
     Dosage: IN CYCLE 1
  3. ETOPOSIDE. [Suspect]
     Active Substance: ETOPOSIDE
     Dosage: IN CYCLE 3
  4. IFOSFAMIDE. [Suspect]
     Active Substance: IFOSFAMIDE
     Dosage: IN CYCLE 1
  5. IFOSFAMIDE. [Suspect]
     Active Substance: IFOSFAMIDE
     Dosage: IN CYCLE 2
  6. DOXORUBICIN [Suspect]
     Active Substance: DOXORUBICIN
     Dosage: IN CYCLE 4
  7. ETOPOSIDE. [Suspect]
     Active Substance: ETOPOSIDE
     Dosage: IN CYCLE 2
  8. LONQUEX [Suspect]
     Active Substance: LIPEGFILGRASTIM
     Indication: NEUTROPENIA
     Dosage: 100 MICROGRAM/KG DAILY; LAST DOSE PRIOR TO SAE: 07-MAR-2017
     Route: 058
     Dates: start: 20170120, end: 20170307
  9. DOXORUBICIN [Suspect]
     Active Substance: DOXORUBICIN
     Dosage: IN CYCLE 3
  10. ETOPOSIDE. [Suspect]
     Active Substance: ETOPOSIDE
     Dosage: IN CYCLE 1
  11. IFOSFAMIDE. [Suspect]
     Active Substance: IFOSFAMIDE
     Dosage: IN CYCLE 3
  12. VINCRISTINE [Suspect]
     Active Substance: VINCRISTINE
     Dosage: 2 MG IN EACH CYCLE (4 CYCLES TOTAL)
  13. DOXORUBICIN [Suspect]
     Active Substance: DOXORUBICIN
     Dosage: IN CYCLE 2
  14. IFOSFAMIDE. [Suspect]
     Active Substance: IFOSFAMIDE
     Dosage: IN CYCLE 4

REACTIONS (2)
  - Anaemia [Recovered/Resolved]
  - Thrombocytopenia [Recovered/Resolved]

NARRATIVE: CASE EVENT DATE: 20170307
